FAERS Safety Report 6273365-6 (Version None)
Quarter: 2009Q3

REPORT INFORMATION
  Report Type: 
  Country: None (occurrence: None)
  Receive Date: 20090720
  Receipt Date: 20090714
  Transmission Date: 20100115
  Serious: Yes (Hospitalization)
  Sender: FDA-Public Use
  Company Number: SE-BAYER-200925484GPV

PATIENT
  Age: 56 Year
  Sex: Male

DRUGS (3)
  1. CIPROFLOXACIN HCL [Suspect]
     Indication: PNEUMONIA STAPHYLOCOCCAL
     Route: 042
     Dates: start: 20090424, end: 20090425
  2. ANTIHYPERTENSIVE DRUG [Concomitant]
     Indication: HYPERTENSION
     Route: 065
  3. COMBIVENT [Concomitant]
     Indication: SECRETION DISCHARGE
     Route: 065

REACTIONS (2)
  - ANAEMIA [None]
  - CARDIAC ARREST [None]
